FAERS Safety Report 19821886 (Version 4)
Quarter: 2022Q1

REPORT INFORMATION
  Report Type: Spontaneous
  Country: CA (occurrence: CA)
  Receive Date: 20210913
  Receipt Date: 20220225
  Transmission Date: 20220423
  Serious: Yes (Death, Other)
  Sender: FDA-Public Use
  Company Number: CA-002147023-NVSC2021CA204011

PATIENT

DRUGS (65)
  1. DICLOFENAC [Suspect]
     Active Substance: DICLOFENAC
     Indication: Foetal exposure during pregnancy
     Dosage: UNK (MATERNAL DOSE: UNKNOWN)
     Route: 064
  2. DIPHENHYDRAMINE HYDROCHLORIDE [Suspect]
     Active Substance: DIPHENHYDRAMINE HYDROCHLORIDE
     Indication: Foetal exposure during pregnancy
     Dosage: UNK(MATERNAL DOSE: UNKNOWN)
     Route: 064
  3. ACETAMINOPHEN [Suspect]
     Active Substance: ACETAMINOPHEN
     Indication: Foetal exposure during pregnancy
     Dosage: UNK (MATERNAL DOSE: UNKNOWN)
     Route: 064
  4. ACETAMINOPHEN [Suspect]
     Active Substance: ACETAMINOPHEN
     Dosage: UNK (MATERNAL DOSE: UNKNOWN)
     Route: 064
  5. DICLOFENAC SODIUM [Suspect]
     Active Substance: DICLOFENAC SODIUM
     Indication: Foetal exposure during pregnancy
     Dosage: UNK (MATERNAL DOSE: UNKNOWN)
     Route: 064
  6. TOCILIZUMAB [Suspect]
     Active Substance: TOCILIZUMAB
     Indication: Foetal exposure during pregnancy
     Dosage: UNK
     Route: 064
  7. RITUXIMAB [Suspect]
     Active Substance: RITUXIMAB
     Indication: Foetal exposure during pregnancy
     Dosage: UNK (MATERNAL DOSE: UNKNOWN)
     Route: 064
  8. ADALIMUMAB [Suspect]
     Active Substance: ADALIMUMAB
     Indication: Foetal exposure during pregnancy
     Dosage: UNK (MATERNAL DOSE: UNKNOWN)
     Route: 064
  9. ERELZI [Suspect]
     Active Substance: ETANERCEPT-SZZS
     Indication: Foetal exposure during pregnancy
     Dosage: UNK (MATERNAL DOSE: UNKNOWN)
     Route: 064
  10. HYDROXYCHLOROQUINE SULFATE [Suspect]
     Active Substance: HYDROXYCHLOROQUINE SULFATE
     Indication: Foetal exposure during pregnancy
     Dosage: UNK (MATERNAL DOSE: UNKNOWN)
     Route: 064
  11. HYDROXYCHLOROQUINE SULFATE [Suspect]
     Active Substance: HYDROXYCHLOROQUINE SULFATE
     Dosage: UNK (MATERNAL DOSE: 400 MG)
     Route: 064
  12. HYDROXYCHLOROQUINE SULFATE [Suspect]
     Active Substance: HYDROXYCHLOROQUINE SULFATE
     Dosage: UNK (MATERNAL DOSE: UNKNOWN)
     Route: 064
  13. LEFLUNOMIDE [Suspect]
     Active Substance: LEFLUNOMIDE
     Indication: Foetal exposure during pregnancy
     Dosage: 20 MG
     Route: 064
  14. LEFLUNOMIDE [Suspect]
     Active Substance: LEFLUNOMIDE
     Dosage: UNK (MATERNAL DOSE: UNKNOWN)
     Route: 064
  15. LEFLUNOMIDE [Suspect]
     Active Substance: LEFLUNOMIDE
     Dosage: UNK (MATERNAL DOSE: 20 MG)
     Route: 064
  16. SULFASALAZINE [Suspect]
     Active Substance: SULFASALAZINE
     Indication: Foetal exposure during pregnancy
     Dosage: 1000 MG
     Route: 064
  17. SULFASALAZINE [Suspect]
     Active Substance: SULFASALAZINE
     Dosage: 500 MG
     Route: 064
  18. PREDNISONE [Suspect]
     Active Substance: PREDNISONE
     Indication: Foetal exposure during pregnancy
     Dosage: 20 MG
     Route: 064
  19. PREDNISONE [Suspect]
     Active Substance: PREDNISONE
     Dosage: UNK (MATERNAL DOSE: UNKNOWN)
     Route: 064
  20. PREDNISONE [Suspect]
     Active Substance: PREDNISONE
     Dosage: UNK (MATERNAL DOSE: UNKNOWN)
     Route: 064
  21. METHOTREXATE [Suspect]
     Active Substance: METHOTREXATE
     Indication: Foetal exposure during pregnancy
     Dosage: 20 MG, QD
     Route: 064
  22. METHOTREXATE [Suspect]
     Active Substance: METHOTREXATE
     Dosage: 25 MG, QD
     Route: 064
  23. METHOTREXATE [Suspect]
     Active Substance: METHOTREXATE
     Dosage: UNK (MATERNAL DOSE: UNKNOWN)
     Route: 064
  24. METHOTREXATE [Suspect]
     Active Substance: METHOTREXATE
     Dosage: 25 MG, QD
     Route: 064
  25. ACTEMRA [Suspect]
     Active Substance: TOCILIZUMAB
     Indication: Foetal exposure during pregnancy
     Dosage: UNK
     Route: 064
  26. CETIRIZINE HYDROCHLORIDE [Suspect]
     Active Substance: CETIRIZINE HYDROCHLORIDE
     Indication: Foetal exposure during pregnancy
     Dosage: MATERNAL DOSE: 10 MG
     Route: 064
  27. CETIRIZINE HYDROCHLORIDE [Suspect]
     Active Substance: CETIRIZINE HYDROCHLORIDE
     Dosage: MATERNAL DOSE: UNKNOWN
     Route: 064
  28. CORTISONE ACETATE [Suspect]
     Active Substance: CORTISONE ACETATE
     Indication: Foetal exposure during pregnancy
     Dosage: UNK (MATERNAL DOSE: UNKNOWN)
     Route: 064
  29. CORTISONE ACETATE [Suspect]
     Active Substance: CORTISONE ACETATE
     Dosage: MATERNAL DOSE: 25 MG OF OINTMENT
     Route: 064
  30. CORTISONE ACETATE [Suspect]
     Active Substance: CORTISONE ACETATE
     Dosage: MATERNAL DOSE: 25 MG OF OINTMENT
     Route: 064
  31. CORTISONE ACETATE [Suspect]
     Active Substance: CORTISONE ACETATE
     Dosage: UNK (MATERNAL DOSE: UNKNOWN)
     Route: 064
  32. DESOXIMETASONE [Suspect]
     Active Substance: DESOXIMETASONE
     Indication: Foetal exposure during pregnancy
     Dosage: UNK MATERNAL DOSE: UNKNOWN)
     Route: 064
  33. CIMZIA [Suspect]
     Active Substance: CERTOLIZUMAB PEGOL
     Indication: Foetal exposure during pregnancy
     Dosage: UNK (MATERNAL DOSE: UNKNOWN)
     Route: 064
  34. CIMZIA [Suspect]
     Active Substance: CERTOLIZUMAB PEGOL
     Dosage: 400 MG
     Route: 064
  35. ENBREL [Suspect]
     Active Substance: ETANERCEPT
     Indication: Foetal exposure during pregnancy
     Dosage: UNK (MATERNAL DOSE: 50 MG)
     Route: 064
  36. FOLIC ACID [Suspect]
     Active Substance: FOLIC ACID
     Indication: Foetal exposure during pregnancy
     Dosage: 1 MG
     Route: 064
  37. FOLIC ACID [Suspect]
     Active Substance: FOLIC ACID
     Dosage: 5 MG
     Route: 064
  38. FOLIC ACID [Suspect]
     Active Substance: FOLIC ACID
     Dosage: UNK
     Route: 064
  39. FOLIC ACID [Suspect]
     Active Substance: FOLIC ACID
     Dosage: 5 MG
     Route: 064
  40. FOLIC ACID [Suspect]
     Active Substance: FOLIC ACID
     Dosage: 50 MG
     Route: 064
  41. FOLIC ACID [Suspect]
     Active Substance: FOLIC ACID
     Dosage: 0.5 MG
     Route: 064
  42. GOLIMUMAB [Suspect]
     Active Substance: GOLIMUMAB
     Indication: Foetal exposure during pregnancy
     Dosage: UNK
     Route: 064
  43. XELJANZ [Suspect]
     Active Substance: TOFACITINIB CITRATE
     Indication: Foetal exposure during pregnancy
     Dosage: UNK (MATERNAL DOSE: UNKNOWN)
     Route: 064
  44. HUMIRA [Suspect]
     Active Substance: ADALIMUMAB
     Indication: Foetal exposure during pregnancy
     Dosage: 4 MG
     Route: 064
  45. HUMIRA [Suspect]
     Active Substance: ADALIMUMAB
     Dosage: 40 MG
     Route: 064
  46. ORENCIA [Suspect]
     Active Substance: ABATACEPT
     Indication: Foetal exposure during pregnancy
     Dosage: UNK (MATERNAL DOSE: UNKNOWN)
     Route: 064
  47. METHYLPREDNISOLONE SODIUM SUCCINATE [Suspect]
     Active Substance: METHYLPREDNISOLONE SODIUM SUCCINATE
     Indication: Foetal exposure during pregnancy
     Dosage: UNK (MATERNAL DOSE: UNKNOWN)
     Route: 064
  48. OTEZLA [Suspect]
     Active Substance: APREMILAST
     Indication: Foetal exposure during pregnancy
     Dosage: UNK
     Route: 064
  49. PHTHALYLSULFATHIAZOLE [Suspect]
     Active Substance: PHTHALYLSULFATHIAZOLE
     Indication: Foetal exposure during pregnancy
     Dosage: UNK (MATERNAL DOSE: UNKNOWN)
     Route: 064
  50. CETIRIZINE HYDROCHLORIDE\PSEUDOEPHEDRINE HYDROCHLORIDE [Suspect]
     Active Substance: CETIRIZINE HYDROCHLORIDE\PSEUDOEPHEDRINE HYDROCHLORIDE
     Indication: Foetal exposure during pregnancy
     Dosage: UNK (MATERNAL DOSE: UNKNOWN)
     Route: 064
  51. REMICADE [Suspect]
     Active Substance: INFLIXIMAB
     Indication: Foetal exposure during pregnancy
     Dosage: 300 MG
     Route: 064
  52. REMICADE [Suspect]
     Active Substance: INFLIXIMAB
     Dosage: UNK (MATERNAL DOSE: UNKNOWN)
     Route: 064
  53. REMICADE [Suspect]
     Active Substance: INFLIXIMAB
     Dosage: UNK (MATERNAL DOSE: UNKNOWN)
     Route: 064
  54. SIMPONI [Suspect]
     Active Substance: GOLIMUMAB
     Indication: Foetal exposure during pregnancy
     Dosage: UNK (MATERNAL DOSE: UNKNOWN)
     Route: 064
  55. SIMPONI [Suspect]
     Active Substance: GOLIMUMAB
     Dosage: UNK (MATERNAL DOSE: SOLUTION FOR INJECTION IN PREFILLED PEN
     Route: 064
  56. STELARA [Suspect]
     Active Substance: USTEKINUMAB
     Indication: Foetal exposure during pregnancy
     Dosage: MATERNAL DOSE: UNK SOLUTION
     Route: 064
  57. ALENDRONATE SODIUM [Suspect]
     Active Substance: ALENDRONATE SODIUM
     Indication: Foetal exposure during pregnancy
     Dosage: MATERNAL DOSE: UNKNOWN
     Route: 064
  58. ALENDRONATE SODIUM [Suspect]
     Active Substance: ALENDRONATE SODIUM
     Dosage: MATERNAL DOSE: UNKNOWN
     Route: 064
  59. ALENDRONATE SODIUM [Suspect]
     Active Substance: ALENDRONATE SODIUM
     Dosage: MATERNAL DOSE: UNKNOWN
     Route: 064
  60. CAFFEINE CITRATE [Concomitant]
     Active Substance: CAFFEINE CITRATE
     Indication: Foetal exposure during pregnancy
     Dosage: UNK (MATERNAL DOSE: UNKNOWN)
     Route: 064
  61. CODEINE [Concomitant]
     Active Substance: CODEINE
     Indication: Foetal exposure during pregnancy
     Dosage: UNK (MATERNAL DOSE: UNKNOWN)
     Route: 064
  62. IBUPROFEN [Concomitant]
     Active Substance: IBUPROFEN
     Indication: Foetal exposure during pregnancy
     Dosage: UNK (MATERNAL DOSE: UNKNOWN)
     Route: 064
  63. LISINOPRIL [Concomitant]
     Active Substance: LISINOPRIL
     Indication: Foetal exposure during pregnancy
     Dosage: UNK (MATERNAL DOSE: UNKNOWN)
     Route: 064
  64. SULFASALAZINE [Concomitant]
     Active Substance: SULFASALAZINE
     Indication: Foetal exposure during pregnancy
     Dosage: UNK (MATERNAL DOSE: UNKNOWN)
     Route: 064
  65. VITAMIN D3 [Concomitant]
     Active Substance: CHOLECALCIFEROL
     Indication: Foetal exposure during pregnancy
     Dosage: UNK (MATERNAL DOSE: UNKNOWN)
     Route: 064

REACTIONS (1)
  - Death neonatal [Fatal]
